FAERS Safety Report 18430787 (Version 1)
Quarter: 2020Q4

REPORT INFORMATION
  Report Type: Spontaneous
  Country: US (occurrence: US)
  Receive Date: 20201027
  Receipt Date: 20201027
  Transmission Date: 20210114
  Serious: No
  Sender: FDA-Public Use
  Company Number: US-009507513-2010USA009525

PATIENT
  Age: 24 Year
  Sex: Female

DRUGS (1)
  1. NEXPLANON [Suspect]
     Active Substance: ETONOGESTREL
     Indication: CONTRACEPTION
     Dosage: 68 MG, QD (1 IMPLANT)
     Route: 059
     Dates: start: 20160901

REACTIONS (7)
  - Vomiting [Unknown]
  - Menstruation irregular [Unknown]
  - Nausea [Unknown]
  - Headache [Unknown]
  - Menorrhagia [Unknown]
  - Muscle spasms [Unknown]
  - Incorrect product administration duration [Unknown]

NARRATIVE: CASE EVENT DATE: 20190901
